FAERS Safety Report 25869956 (Version 1)
Quarter: 2025Q4

REPORT INFORMATION
  Report Type: Spontaneous
  Country: US (occurrence: None)
  Receive Date: 20251001
  Receipt Date: 20251001
  Transmission Date: 20260117
  Serious: Yes (Other)
  Sender: FDA-CTU
  Company Number: None

PATIENT
  Age: 45 Year
  Sex: Female

DRUGS (1)
  1. KISQALI [Suspect]
     Active Substance: RIBOCICLIB SUCCINATE
     Dosage: OTHER STRENGTH : 600MG (3X200MG) DO;?OTHER QUANTITY : UNKNOWN;?OTHER FREQUENCY : UNKNOWN;?

REACTIONS (1)
  - Liver injury [None]
